FAERS Safety Report 14524218 (Version 1)
Quarter: 2018Q1

REPORT INFORMATION
  Report Type: Spontaneous
  Country: IT (occurrence: IT)
  Receive Date: 20180213
  Receipt Date: 20180213
  Transmission Date: 20180509
  Serious: Yes (Other)
  Sender: FDA-Public Use
  Company Number: IT-CONCORDIA PHARMACEUTICALS INC.-GSH201802-000544

PATIENT
  Age: 69 Year
  Sex: Male

DRUGS (4)
  1. ALFUZOSIN EXTENDED-RELEASE TABLET [Suspect]
     Active Substance: ALFUZOSIN
     Indication: BENIGN PROSTATIC HYPERPLASIA
     Route: 048
  2. ESOMEPRAZOLE [Concomitant]
     Active Substance: ESOMEPRAZOLE
  3. EZETROL [Concomitant]
     Active Substance: EZETIMIBE
     Indication: HYPERTENSION
  4. LIBRADIN [Concomitant]
     Active Substance: BARNIDIPINE HYDROCHLORIDE
     Indication: HYPERTENSION

REACTIONS (4)
  - Malabsorption [Not Recovered/Not Resolved]
  - Therapeutic response decreased [Unknown]
  - Urinary retention [Not Recovered/Not Resolved]
  - Dysuria [Not Recovered/Not Resolved]

NARRATIVE: CASE EVENT DATE: 2016
